FAERS Safety Report 7795712 (Version 2)
Quarter: 2012Q4

REPORT INFORMATION
  Report Type: Spontaneous
  Country: US (occurrence: None)
  Receive Date: 20110118
  Receipt Date: 20121003
  Transmission Date: 20130627
  Serious: Yes (Other)
  Sender: FDA-Public Use
  Company Number: 2011MA000142

PATIENT
  Sex: Male
  Weight: 87.09 kg

DRUGS (23)
  1. METOCLOPRAMIDE [Suspect]
     Indication: GERD
     Dosage: PO
     Route: 048
     Dates: start: 20021211, end: 20090628
  2. METOCLOPRAMIDE [Suspect]
     Indication: OESOPHAGITIS
     Dosage: PO
     Route: 048
     Dates: start: 20021211, end: 20090628
  3. ACIPHEX [Concomitant]
  4. ALPRAZOLAM [Concomitant]
  5. BUSPIRONE [Concomitant]
  6. CIALIS [Concomitant]
  7. CIPROFLOXIN [Concomitant]
  8. CRESTOR [Concomitant]
  9. GABAPENTIN [Concomitant]
  10. HYDROCODONE/APAP [Concomitant]
  11. LEVITRA [Concomitant]
  12. LIPITOR [Concomitant]
  13. LISINOPRIL [Concomitant]
  14. NEXIUM [Concomitant]
  15. OMEPRAZOLE [Concomitant]
  16. PRAZOSIN [Concomitant]
  17. PREVACID [Concomitant]
  18. SEROQUEL [Concomitant]
  19. SERTRALINE [Concomitant]
  20. SMZ/TMP [Concomitant]
  21. WELLBUTRIN [Concomitant]
  22. ZOCOR [Concomitant]
  23. ZOLPIDEM [Concomitant]

REACTIONS (17)
  - Tardive dyskinesia [None]
  - Akathisia [None]
  - Extrapyramidal disorder [None]
  - Economic problem [None]
  - Emotional disorder [None]
  - Depression [None]
  - Nightmare [None]
  - Psychotic disorder [None]
  - Muscle twitching [None]
  - Hypersomnia [None]
  - Memory impairment [None]
  - Anxiety [None]
  - Suicidal ideation [None]
  - Fear [None]
  - Aphagia [None]
  - Social avoidant behaviour [None]
  - Feeling abnormal [None]
